FAERS Safety Report 7133345-5 (Version None)
Quarter: 2010Q4

REPORT INFORMATION
  Report Type: 
  Country: None (occurrence: None)
  Receive Date: 20101202
  Receipt Date: 20101118
  Transmission Date: 20110411
  Serious: Yes (Hospitalization)
  Sender: FDA-Public Use
  Company Number: IT-WATSON-2010-15462

PATIENT
  Age: 44 Year
  Sex: Male

DRUGS (8)
  1. CLARITHROMYCIN [Suspect]
     Indication: LUNG CONSOLIDATION
     Dosage: 1 G, DAILY
     Route: 048
  2. AMOXICILLIN [Suspect]
     Indication: HYPERPYREXIA
     Dosage: UNK
     Route: 048
  3. CLAVULANATE POTASSIUM [Suspect]
     Indication: HYPERPYREXIA
     Dosage: UNK
     Route: 048
  4. PIPERACILLIN [Suspect]
     Indication: LUNG CONSOLIDATION
     Dosage: UNK
     Route: 042
  5. TAZOBACTAM [Suspect]
     Indication: LUNG CONSOLIDATION
     Dosage: 13 1/2 G, DAILY
     Route: 042
  6. LEVOFLOXACIN [Suspect]
     Indication: LEGIONELLA TEST POSITIVE
     Dosage: 750 MG, DAILY
     Route: 042
  7. RIFAMPICIN [Suspect]
     Indication: PNEUMONIA LEGIONELLA
     Dosage: 900 MG, DAILY
  8. FLUCONAZOLE [Suspect]
     Indication: PNEUMONIA LEGIONELLA
     Dosage: 800 MG, DAILY
     Route: 042

REACTIONS (2)
  - EOSINOPHILIC PNEUMONIA [None]
  - PNEUMOTHORAX [None]
